FAERS Safety Report 26097827 (Version 1)
Quarter: 2025Q4

REPORT INFORMATION
  Report Type: Spontaneous
  Country: CN (occurrence: CN)
  Receive Date: 20251127
  Receipt Date: 20251127
  Transmission Date: 20260117
  Serious: Yes (Life-Threatening, Other)
  Sender: ASTELLAS
  Company Number: CN-GILEAD-2025-0738178

PATIENT
  Age: 73 Year
  Sex: Female
  Weight: 60 kg

DRUGS (3)
  1. AMPHOTERICIN B [Suspect]
     Active Substance: AMPHOTERICIN B
     Indication: Systemic candida
     Dosage: 250 MG, QD
     Route: 042
     Dates: start: 20251121, end: 20251122
  2. STERILE WATER FOR INJECTION [Concomitant]
     Active Substance: WATER
     Indication: Rheumatic heart disease
     Dosage: 60 ML, QD
     Route: 042
     Dates: start: 20251121, end: 20251122
  3. DEXTROSE [Concomitant]
     Active Substance: DEXTROSE MONOHYDRATE
     Indication: Rheumatic heart disease
     Dosage: 150 ML, QD
     Route: 042
     Dates: start: 20251121, end: 20251122

REACTIONS (2)
  - Shock [Recovering/Resolving]
  - Cyanosis [Recovering/Resolving]

NARRATIVE: CASE EVENT DATE: 20251122
